FAERS Safety Report 17555106 (Version 1)
Quarter: 2020Q1

REPORT INFORMATION
  Report Type: Spontaneous
  Country: IT (occurrence: IT)
  Receive Date: 20200318
  Receipt Date: 20200318
  Transmission Date: 20200409
  Serious: Yes (Other)
  Sender: FDA-Public Use
  Company Number: IT-JNJFOC-20200312280

PATIENT
  Age: 35 Year
  Sex: Male
  Weight: 77 kg

DRUGS (3)
  1. SOLIAN [Suspect]
     Active Substance: AMISULPRIDE
     Indication: PSYCHOTIC DISORDER
     Dosage: 200 MG COMPRESSE
     Route: 065
     Dates: start: 20181121
  2. XEPLION [Suspect]
     Active Substance: PALIPERIDONE PALMITATE
     Indication: SCHIZOPHRENIA
     Route: 030
     Dates: start: 20181205
  3. LEXOTAN [Concomitant]
     Active Substance: BROMAZEPAM
     Indication: DEPRESSION
     Dosage: 2,5 MG/ML GOCCE ORALI SOLUZIONE
     Route: 065

REACTIONS (9)
  - Bradykinesia [Unknown]
  - Electrocardiogram abnormal [Unknown]
  - Somnolence [Unknown]
  - Dyskinesia [Unknown]
  - Arrhythmia [Unknown]
  - Hypercholesterolaemia [Unknown]
  - Weight increased [Unknown]
  - Dysuria [Unknown]
  - Tremor [Unknown]

NARRATIVE: CASE EVENT DATE: 20190122
